FAERS Safety Report 8071379-7 (Version None)
Quarter: 2012Q1

REPORT INFORMATION
  Report Type: 
  Country: None (occurrence: None)
  Receive Date: 20120125
  Receipt Date: 20110704
  Transmission Date: 20120608
  Serious: Yes (Other)
  Sender: FDA-Public Use
  Company Number: DE-EISAI INC-E7273-00234-SPO-DE

PATIENT
  Age: 83 Year
  Sex: Female

DRUGS (1)
  1. TARGRETIN [Suspect]
     Route: 048

REACTIONS (1)
  - CARDIAC FAILURE [None]
